FAERS Safety Report 14085748 (Version 1)
Quarter: 2017Q4

REPORT INFORMATION
  Report Type: Spontaneous
  Country: FR (occurrence: FR)
  Receive Date: 20171013
  Receipt Date: 20171013
  Transmission Date: 20180321
  Serious: Yes (Other)
  Sender: FDA-Public Use
  Company Number: FR-MERCK KGAA-2029921

PATIENT
  Sex: Female

DRUGS (1)
  1. NOVOTHYROX [Suspect]
     Active Substance: LEVOTHYROXINE SODIUM
     Indication: PRODUCT USED FOR UNKNOWN INDICATION
     Dates: start: 20170410

REACTIONS (10)
  - Depression [Unknown]
  - Swelling [Unknown]
  - Vertigo [Unknown]
  - Pulmonary embolism [Unknown]
  - Decreased appetite [Unknown]
  - Malaise [Unknown]
  - Weight increased [Unknown]
  - Alopecia [Unknown]
  - Dizziness [Unknown]
  - Nausea [Unknown]
